FAERS Safety Report 4743470-1 (Version None)
Quarter: 2005Q3

REPORT INFORMATION
  Report Type: 
  Country: None (occurrence: None)
  Receive Date: 20050809
  Receipt Date: 20050729
  Transmission Date: 20060218
  Serious: Yes (Life-Threatening, Hospitalization, Other)
  Sender: FDA-Public Use
  Company Number: 2005EU001737

PATIENT
  Age: 21 Year
  Sex: Male

DRUGS (1)
  1. PROGRAF [Suspect]
     Indication: RENAL TRANSPLANT
     Dosage: 9.00 MG, UNKNOWN/D, ORAL
     Route: 048
     Dates: start: 20050712

REACTIONS (3)
  - CONDITION AGGRAVATED [None]
  - HYPERKALAEMIA [None]
  - RENAL TUBULAR ACIDOSIS [None]
